FAERS Safety Report 8418987-9 (Version None)
Quarter: 2012Q2

REPORT INFORMATION
  Report Type: 
  Country: None (occurrence: None)
  Receive Date: 20120607
  Receipt Date: 20120531
  Transmission Date: 20120825
  Serious: Yes (Death)
  Sender: FDA-Public Use
  Company Number: PHHY2012TR046779

PATIENT
  Age: 45 Year
  Sex: Male

DRUGS (3)
  1. MYCOPHENOLATE MOFETIL [Suspect]
     Indication: RENAL TRANSPLANT
  2. CORTICOSTEROIDS [Suspect]
     Indication: RENAL TRANSPLANT
  3. EVEROLIMUS [Suspect]
     Indication: RENAL TRANSPLANT

REACTIONS (1)
  - GLIOBLASTOMA MULTIFORME [None]
